FAERS Safety Report 9571722 (Version 1)
Quarter: 2013Q4

REPORT INFORMATION
  Report Type: Spontaneous
  Country: US (occurrence: US)
  Receive Date: 20131001
  Receipt Date: 20131001
  Transmission Date: 20140711
  Serious: No
  Sender: FDA-Public Use
  Company Number: US-BIOGENIDEC-2013BI065756

PATIENT
  Age: 55 Year
  Sex: Female

DRUGS (2)
  1. TECFIDERA [Suspect]
     Indication: MULTIPLE SCLEROSIS
     Route: 048
     Dates: start: 20130628, end: 20130704
  2. TECFIDERA [Suspect]
     Indication: MULTIPLE SCLEROSIS
     Route: 048
     Dates: start: 20130705

REACTIONS (13)
  - Insomnia [Unknown]
  - Contusion [Unknown]
  - Tremor [Unknown]
  - Mobility decreased [Unknown]
  - Muscular weakness [Unknown]
  - Asthenia [Unknown]
  - Speech disorder [Unknown]
  - Headache [Unknown]
  - Gastrointestinal disorder [Unknown]
  - Diarrhoea [Unknown]
  - Pruritus [Unknown]
  - Nausea [Unknown]
  - Adverse event [Recovered/Resolved]
